FAERS Safety Report 24768325 (Version 3)
Quarter: 2025Q4

REPORT INFORMATION
  Report Type: Report from Study
  Country: US (occurrence: US)
  Receive Date: 20241223
  Receipt Date: 20251222
  Transmission Date: 20260119
  Serious: Yes (Hospitalization, Other)
  Sender: ABBVIE
  Company Number: US-ABBVIE-6032326

PATIENT
  Age: 83 Year
  Sex: Female
  Weight: 83.46 kg

DRUGS (9)
  1. HUMIRA [Suspect]
     Active Substance: ADALIMUMAB
     Indication: Psoriatic arthropathy
     Dosage: CITRATE FREE?FORM STRENGTH: 40 MILLIGRAM
     Route: 058
     Dates: start: 2011
  2. HUMIRA [Suspect]
     Active Substance: ADALIMUMAB
     Dosage: FORM STRENGTH: 40 MILLIGRAM
     Route: 058
     Dates: start: 20120212
  3. HUMIRA [Suspect]
     Active Substance: ADALIMUMAB
     Dosage: CF PEN. FORM STRENGTH: 40 MILLIGRAM
     Route: 058
     Dates: start: 20221208
  4. CARDIZEM [Concomitant]
     Active Substance: DILTIAZEM HYDROCHLORIDE
     Indication: Cardiac disorder
  5. PREDNISONE [Concomitant]
     Active Substance: PREDNISONE
     Indication: Papilloedema
     Dosage: 5 MILLIGRAM
  6. PREMARIN [Concomitant]
     Active Substance: ESTROGENS, CONJUGATED
     Indication: Hysterectomy
  7. ELIQUIS [Concomitant]
     Active Substance: APIXABAN
     Indication: Haematoma
  8. PEPCID [Concomitant]
     Active Substance: FAMOTIDINE
     Indication: Gastrooesophageal reflux disease
  9. FLEXERIL [Concomitant]
     Active Substance: CYCLOBENZAPRINE HYDROCHLORIDE
     Indication: Psoriatic arthropathy

REACTIONS (15)
  - Haematoma [Not Recovered/Not Resolved]
  - Rib fracture [Recovering/Resolving]
  - Fall [Recovered/Resolved]
  - Musculoskeletal chest pain [Recovering/Resolving]
  - Dysstasia [Unknown]
  - Loss of personal independence in daily activities [Unknown]
  - Gait inability [Unknown]
  - Calcinosis [Unknown]
  - Paralysis [Unknown]
  - Sciatic nerve neuropathy [Unknown]
  - Arthropathy [Not Recovered/Not Resolved]
  - Fall [Unknown]
  - Cat scratch disease [Not Recovered/Not Resolved]
  - Psoriatic arthropathy [Not Recovered/Not Resolved]
  - Peripheral swelling [Unknown]

NARRATIVE: CASE EVENT DATE: 20240101
